FAERS Safety Report 7702369-9 (Version None)
Quarter: 2011Q3

REPORT INFORMATION
  Report Type: 
  Country: None (occurrence: None)
  Receive Date: 20110822
  Receipt Date: 20110812
  Transmission Date: 20111222
  Serious: Yes (Other)
  Sender: FDA-Public Use
  Company Number: MW-ABBOTT-11P-100-0845932-00

PATIENT
  Age: 35 Year
  Sex: Female

DRUGS (4)
  1. LOPINAVIR/RITONAVIR [Suspect]
     Indication: HIV INFECTION
     Dosage: 250/50 MG
     Route: 048
     Dates: start: 20110121, end: 20110728
  2. EFAVIRENZ [Concomitant]
     Indication: HIV INFECTION
     Dates: start: 20090508, end: 20110121
  3. FERROUS SULFATE TAB [Concomitant]
     Indication: PRODUCT USED FOR UNKNOWN INDICATION
     Dates: start: 20110719
  4. LAMIVUDINE + ZIDOVUDINE [Concomitant]
     Indication: HIV INFECTION
     Dosage: 150/300 MG
     Route: 048
     Dates: start: 20090508, end: 20110728

REACTIONS (1)
  - INTRA-UTERINE DEATH [None]
